FAERS Safety Report 17098531 (Version 1)
Quarter: 2019Q4

REPORT INFORMATION
  Report Type: Spontaneous
  Country: RO (occurrence: RO)
  Receive Date: 20191202
  Receipt Date: 20191202
  Transmission Date: 20200122
  Serious: Yes (Other)
  Sender: FDA-Public Use
  Company Number: RO-PFIZER INC-2019513276

PATIENT
  Age: 64 Year
  Sex: Male

DRUGS (8)
  1. IRINOTECAN HCL [Suspect]
     Active Substance: IRINOTECAN HYDROCHLORIDE
     Indication: COLON CANCER
     Dosage: DAY ONE OF EACH CYCLE
     Route: 065
     Dates: start: 20171016, end: 20180118
  2. XELODA [Suspect]
     Active Substance: CAPECITABINE
     Indication: COLON CANCER
     Dosage: DAYS 1-14 FROM EACH CYCLE
     Route: 048
     Dates: start: 201606, end: 201701
  3. AVASTIN [Suspect]
     Active Substance: BEVACIZUMAB
     Dosage: 7.5 MG/KG, UNK
     Route: 065
     Dates: start: 20180212
  4. OXALIPLATIN. [Suspect]
     Active Substance: OXALIPLATIN
     Dosage: UNK
     Route: 065
     Dates: start: 20180212
  5. XELODA [Suspect]
     Active Substance: CAPECITABINE
     Dosage: DAYS 1-14, EVERY 21 DAYS
     Route: 048
     Dates: start: 20171016, end: 20180118
  6. AVASTIN [Suspect]
     Active Substance: BEVACIZUMAB
     Indication: COLON CANCER
     Dosage: 7.5 MG/KG, UNK
     Route: 065
     Dates: start: 20171016, end: 20180118
  7. XELODA [Suspect]
     Active Substance: CAPECITABINE
     Dosage: DAYS 1-14 OF EACH CYCLE
     Route: 048
     Dates: start: 20180212
  8. OXALIPLATIN. [Suspect]
     Active Substance: OXALIPLATIN
     Indication: COLON CANCER
     Dosage: 130 MG/M2, 1X/DAY
     Route: 065
     Dates: start: 201606, end: 201701

REACTIONS (3)
  - Neurotoxicity [Unknown]
  - Anaemia [Unknown]
  - Hypertension [Unknown]
